FAERS Safety Report 9318881 (Version 1)
Quarter: 2013Q2

REPORT INFORMATION
  Report Type: Spontaneous
  Country: IT (occurrence: None)
  Receive Date: 20130520
  Receipt Date: 20130520
  Transmission Date: 20140414
  Serious: Yes (Other)
  Sender: FDA-Public Use
  Company Number: 2013035980

PATIENT
  Age: 49 Year
  Sex: Male

DRUGS (1)
  1. IVIG [Suspect]
     Indication: CHRONIC INFLAMMATORY DEMYELINATING POLYRADICULONEUROPATHY
     Route: 042

REACTIONS (4)
  - Drug ineffective [None]
  - Hyperhomocysteinaemia [None]
  - Thrombocytosis [None]
  - POEMS syndrome [None]
